FAERS Safety Report 8607474-0 (Version None)
Quarter: 2012Q3

REPORT INFORMATION
  Report Type: 
  Country: None (occurrence: None)
  Receive Date: 20120821
  Receipt Date: 20120810
  Transmission Date: 20120928
  Serious: Yes (Death, Life-Threatening, Hospitalization)
  Sender: FDA-Public Use
  Company Number: BR-JNJFOC-20120209440

PATIENT
  Sex: Male
  Weight: 53.1 kg

DRUGS (4)
  1. ABIRATERONE ACETATE [Suspect]
     Indication: PROSTATE CANCER METASTATIC
     Route: 048
     Dates: start: 20111201, end: 20120214
  2. ABIRATERONE ACETATE [Suspect]
     Route: 048
  3. PREDNISONE [Suspect]
     Indication: PROSTATE CANCER METASTATIC
     Route: 048
     Dates: start: 20111201, end: 20120214
  4. HYDROMORPHONE HCL [Concomitant]
     Indication: ABDOMINAL PAIN
     Route: 065
     Dates: start: 20111124

REACTIONS (2)
  - PNEUMONIA [None]
  - DEEP VEIN THROMBOSIS [None]
